FAERS Safety Report 10373845 (Version 1)
Quarter: 2014Q1

REPORT INFORMATION
  Report Type: Spontaneous
  Country: US (occurrence: None)
  Receive Date: 20140306
  Receipt Date: 20140306
  Transmission Date: 20141002
  Serious: Yes (Hospitalization)
  Sender: FDA-Public Use
  Company Number: 163-21880-13105070

PATIENT
  Age: 74 Year
  Sex: Male

DRUGS (11)
  1. REVLIMID [Suspect]
     Indication: PLASMA CELL MYELOMA
     Dosage: 25 MG, 21 IN 21 D, PO
     Route: 048
     Dates: start: 20121111
  2. CENTRUM SILVER [Concomitant]
  3. DEXAMETHASONE [Concomitant]
  4. ZOMETA (ZOLEDRONIC ACID) [Concomitant]
  5. GABAPENTIN [Concomitant]
  6. TRIAMCINOLONE ACETONIDE [Concomitant]
  7. ALPRAZOLAM (TABLETS) [Concomitant]
  8. WARFARIN SODIUM [Concomitant]
  9. ATORVASTATIN CALCIUM [Concomitant]
  10. LOSARTAN POTASSIUM [Concomitant]
  11. ATENOLOL [Suspect]

REACTIONS (1)
  - Myocardial infarction [None]
